FAERS Safety Report 4450266-7 (Version None)
Quarter: 2004Q3

REPORT INFORMATION
  Report Type: 
  Country: None (occurrence: None)
  Receive Date: 20040914
  Receipt Date: 20040902
  Transmission Date: 20050211
  Serious: Yes (Death)
  Sender: FDA-Public Use
  Company Number: 2004231704ID

PATIENT
  Sex: Male

DRUGS (1)
  1. XANAX [Suspect]
     Dosage: 2 MG, ORAL
     Route: 048

REACTIONS (3)
  - COMA [None]
  - DRUG INTERACTION [None]
  - LOSS OF CONSCIOUSNESS [None]
